FAERS Safety Report 24230878 (Version 1)
Quarter: 2024Q3

REPORT INFORMATION
  Report Type: Spontaneous
  Country: US (occurrence: US)
  Receive Date: 20240821
  Receipt Date: 20240821
  Transmission Date: 20241016
  Serious: No
  Sender: APOTEX
  Company Number: US-APOTEX-2024AP009490

PATIENT
  Sex: Female

DRUGS (5)
  1. GUANFACINE [Suspect]
     Active Substance: GUANFACINE
     Indication: Brain fog
     Dosage: 1 MILLIGRAM, Q.H.S.
     Route: 048
  2. GUANFACINE [Suspect]
     Active Substance: GUANFACINE
     Indication: Cognitive disorder
  3. SERTRALINE [Concomitant]
     Active Substance: SERTRALINE HYDROCHLORIDE
     Indication: Anxiety
     Dosage: 100 MILLIGRAM
     Route: 065
  4. ACETYLCYSTEINE [Concomitant]
     Active Substance: ACETYLCYSTEINE
     Indication: Brain fog
     Dosage: 600 MILLIGRAM, QD
     Route: 048
  5. ACETYLCYSTEINE [Concomitant]
     Active Substance: ACETYLCYSTEINE
     Indication: Cognitive disorder

REACTIONS (1)
  - Hypotension [Recovered/Resolved]
